FAERS Safety Report 24876813 (Version 3)
Quarter: 2025Q3

REPORT INFORMATION
  Report Type: Report from Study
  Country: CA (occurrence: CA)
  Receive Date: 20250123
  Receipt Date: 20250811
  Transmission Date: 20251021
  Serious: Yes (Other)
  Sender: TAKEDA
  Company Number: CA-TAKEDA-2024TUS063532

PATIENT
  Sex: Male

DRUGS (4)
  1. VEDOLIZUMAB [Suspect]
     Active Substance: VEDOLIZUMAB
     Indication: Colitis ulcerative
  2. VEDOLIZUMAB [Suspect]
     Active Substance: VEDOLIZUMAB
     Indication: Colitis ulcerative
     Dosage: 108 MILLIGRAM, Q2WEEKS
     Dates: start: 20240802
  3. MESALAMINE [Concomitant]
     Active Substance: MESALAMINE
  4. MESALAMINE [Concomitant]
     Active Substance: MESALAMINE

REACTIONS (8)
  - Haematochezia [Unknown]
  - Anal haemorrhage [Unknown]
  - Injection site hypersensitivity [Unknown]
  - Social problem [Unknown]
  - Frequent bowel movements [Unknown]
  - Impaired work ability [Unknown]
  - Anorectal polyp [Unknown]
  - Fatigue [Unknown]
